FAERS Safety Report 10348146 (Version 1)
Quarter: 2014Q3

REPORT INFORMATION
  Report Type: Spontaneous
  Country: FR (occurrence: FR)
  Receive Date: 20140729
  Receipt Date: 20140729
  Transmission Date: 20150326
  Serious: Yes (Other)
  Sender: FDA-Public Use
  Company Number: FR-TEVA-496031ISR

PATIENT
  Age: 14 Year
  Sex: Male

DRUGS (5)
  1. DAUNORUBICIN [Concomitant]
     Active Substance: DAUNORUBICIN
  2. L-ASPARAGINASE [Concomitant]
     Active Substance: ASPARAGINASE
  3. PREDNISONE. [Concomitant]
     Active Substance: PREDNISONE
  4. METHOTREXATE [Concomitant]
     Active Substance: METHOTREXATE
  5. VINCRISTINE TEVA 0.1 POUR CENT (1MG/1ML) [Suspect]
     Active Substance: VINCRISTINE
     Indication: B-CELL TYPE ACUTE LEUKAEMIA
     Dosage: 1.5 MG/M2 ON DAY 8, DAY 15, DAY 22 AND DAY 29
     Route: 040
     Dates: start: 20140111, end: 20140201

REACTIONS (1)
  - Neuropathy peripheral [Unknown]

NARRATIVE: CASE EVENT DATE: 201403
